FAERS Safety Report 13280484 (Version 1)
Quarter: 2017Q1

REPORT INFORMATION
  Report Type: Spontaneous
  Country: US (occurrence: US)
  Receive Date: 20170301
  Receipt Date: 20170301
  Transmission Date: 20170428
  Serious: Yes (Other)
  Sender: FDA-Public Use
  Company Number: PHEH2017US005884

PATIENT
  Sex: Male

DRUGS (1)
  1. FARYDAK [Suspect]
     Active Substance: PANOBINOSTAT
     Indication: PLASMA CELL MYELOMA
     Dosage: 10 MG, ON DAYS 1, 4, 8, 11, 15, 19 OF CHEMOTHERAPY CYCLE
     Route: 048
     Dates: start: 20170202

REACTIONS (2)
  - Malignant neoplasm progression [Unknown]
  - Plasma cell myeloma [Unknown]
